FAERS Safety Report 8759903 (Version 1)
Quarter: 2012Q4

REPORT INFORMATION
  Report Type: 
  Country: DK (occurrence: DK)
  Receive Date: 20120829
  Receipt Date: 20120829
  Transmission Date: 20130627
  Serious: Yes (Hospitalization)
  Sender: FDA-Public Use
  Company Number: DK-WATSON-2012-14749

PATIENT
  Age: 81 Year
  Sex: Male

DRUGS (13)
  1. CITALOPRAM HYDROBROMIDE (UNKNOWN) [Suspect]
     Indication: PRODUCT USED FOR UNKNOWN INDICATION
     Route: 065
  2. AZILECT [Suspect]
     Indication: PARKINSON^S DISEASE
     Dosage: UNK
     Route: 065
     Dates: start: 20091001
  3. ALENDRONIC ACID [Concomitant]
     Indication: PRODUCT USED FOR UNKNOWN INDICATION
     Route: 065
  4. PIPERACILINA/TAZOBACTAM TEVA [Concomitant]
     Indication: PRODUCT USED FOR UNKNOWN INDICATION
     Route: 065
  5. MOVICOL                            /01625101/ [Concomitant]
     Indication: PRODUCT USED FOR UNKNOWN INDICATION
     Route: 065
  6. FINASTERIDE [Concomitant]
     Indication: PRODUCT USED FOR UNKNOWN INDICATION
     Route: 065
  7. OMEPRAZOLE [Concomitant]
     Indication: PRODUCT USED FOR UNKNOWN INDICATION
     Route: 065
  8. MIDODRINE [Concomitant]
     Indication: PRODUCT USED FOR UNKNOWN INDICATION
     Route: 065
  9. PARACETAMOL [Concomitant]
     Indication: PRODUCT USED FOR UNKNOWN INDICATION
     Route: 065
  10. STALEVO [Concomitant]
     Indication: PRODUCT USED FOR UNKNOWN INDICATION
     Route: 065
  11. DALTEPARIN [Concomitant]
     Indication: PRODUCT USED FOR UNKNOWN INDICATION
     Route: 065
  12. ROPINIROLE [Concomitant]
     Indication: PRODUCT USED FOR UNKNOWN INDICATION
     Route: 065
  13. CALCIUM +VIT D [Concomitant]
     Indication: PRODUCT USED FOR UNKNOWN INDICATION
     Route: 065

REACTIONS (8)
  - Drug withdrawal syndrome [Unknown]
  - Neuroleptic malignant syndrome [Unknown]
  - Blood creatine phosphokinase increased [Unknown]
  - Hyperhidrosis [Unknown]
  - Muscle rigidity [Unknown]
  - Hyperpyrexia [Unknown]
  - Serotonin syndrome [Unknown]
  - Hypertonia [Unknown]
